FAERS Safety Report 20535863 (Version 1)
Quarter: 2022Q1

REPORT INFORMATION
  Report Type: Spontaneous
  Country: DE (occurrence: DE)
  Receive Date: 20220302
  Receipt Date: 20220302
  Transmission Date: 20220423
  Serious: Yes (Death, Congenital Anomaly)
  Sender: FDA-Public Use
  Company Number: DE-JNJFOC-20211142144

PATIENT
  Sex: Female

DRUGS (9)
  1. STELARA [Suspect]
     Active Substance: USTEKINUMAB
     Indication: Crohn^s disease
     Route: 064
     Dates: start: 201810
  2. OMEPRAZOLE [Concomitant]
     Active Substance: OMEPRAZOLE
     Route: 048
  3. ENTOCORT [Concomitant]
     Active Substance: BUDESONIDE
     Route: 048
  4. TRAMADOL [Concomitant]
     Active Substance: TRAMADOL
  5. MIFEPRISTONE [Concomitant]
     Active Substance: MIFEPRISTONE
  6. OXYTOCIN [Concomitant]
     Active Substance: OXYTOCIN
  7. UNSPECIFIED INGREDIENT [Concomitant]
     Active Substance: UNSPECIFIED INGREDIENT
  8. MISOPROSTOL [Concomitant]
     Active Substance: MISOPROSTOL
  9. PREPIDIL [Concomitant]
     Active Substance: DINOPROSTONE

REACTIONS (3)
  - Hydrops foetalis [Fatal]
  - Foetal malformation [Fatal]
  - Foetal exposure during pregnancy [Recovered/Resolved]
